FAERS Safety Report 5463838-8 (Version None)
Quarter: 2007Q3

REPORT INFORMATION
  Report Type: 
  Country: None (occurrence: None)
  Receive Date: 20070919
  Receipt Date: 20070913
  Transmission Date: 20080115
  Serious: Yes (Other)
  Sender: FDA-Public Use
  Company Number: 40845

PATIENT
  Age: 40 Year
  Sex: Female

DRUGS (1)
  1. ACETYLCYSTEINE SOLUTION [Suspect]
     Dosage: IV
     Route: 042
     Dates: start: 20070913

REACTIONS (2)
  - ACCIDENTAL EXPOSURE [None]
  - MEDICATION ERROR [None]
